FAERS Safety Report 10750609 (Version 1)
Quarter: 2015Q1

REPORT INFORMATION
  Report Type: Spontaneous
  Country: IT (occurrence: IT)
  Receive Date: 20150130
  Receipt Date: 20150130
  Transmission Date: 20150721
  Serious: Yes (Other)
  Sender: FDA-Public Use
  Company Number: IT-AUROBINDO-AUR-APL-2015-00531

PATIENT
  Age: 66 Year
  Sex: Male
  Weight: 75 kg

DRUGS (2)
  1. CARVEDILOL  6.25 MG [Suspect]
     Active Substance: CARVEDILOL
     Indication: PRODUCT USED FOR UNKNOWN INDICATION
     Dosage: 6.25 MG, DAILY
     Route: 048
     Dates: start: 20141117, end: 20141123
  2. BRILIQUE [Suspect]
     Active Substance: TICAGRELOR
     Indication: PLATELET AGGREGATION INHIBITION
     Dosage: 2 DF, DAILY
     Route: 048
     Dates: start: 20141117, end: 20141119

REACTIONS (5)
  - Electrocardiogram ST segment elevation [Unknown]
  - Hypertension [Unknown]
  - Atrioventricular block [Recovered/Resolved]
  - Coronary artery disease [Unknown]
  - Ejection fraction decreased [Unknown]

NARRATIVE: CASE EVENT DATE: 20141119
